FAERS Safety Report 10613769 (Version 2)
Quarter: 2014Q4

REPORT INFORMATION
  Report Type: Spontaneous
  Country: US (occurrence: US)
  Receive Date: 20141128
  Receipt Date: 20141231
  Transmission Date: 20150529
  Serious: Yes (Hospitalization)
  Sender: FDA-Public Use
  Company Number: US-PFIZER INC-2014325485

PATIENT
  Age: 59 Year
  Sex: Male

DRUGS (1)
  1. SUTENT [Suspect]
     Active Substance: SUNITINIB MALATE
     Dosage: 50 MG, CYCLIC (50MG A DAY X 28 DAYS ON, 2 WEEKS OFF)
     Dates: start: 201409, end: 20141119

REACTIONS (4)
  - Eating disorder [Unknown]
  - Dysphagia [Unknown]
  - Dehydration [Unknown]
  - Heart rate irregular [Unknown]
